FAERS Safety Report 4876345-8 (Version None)
Quarter: 2005Q4

REPORT INFORMATION
  Report Type: 
  Country: None (occurrence: None)
  Receive Date: 20051206
  Receipt Date: 20050713
  Transmission Date: 20060501
  Serious: No
  Sender: FDA-Public Use
  Company Number: USA0508104679

PATIENT
  Age: 54 Year
  Sex: Male

DRUGS (4)
  1. CYMBALTA [Suspect]
     Dosage: 60 MG DAY
     Dates: start: 20050304
  2. VALPROIC ACID [Concomitant]
  3. PREVACID [Concomitant]
  4. TYLENOL (CAPLET) [Concomitant]

REACTIONS (1)
  - PLATELET COUNT DECREASED [None]
